FAERS Safety Report 9420510 (Version 1)
Quarter: 2013Q3

REPORT INFORMATION
  Report Type: Spontaneous
  Country: US (occurrence: US)
  Receive Date: 20130725
  Receipt Date: 20130725
  Transmission Date: 20140515
  Serious: No
  Sender: FDA-Public Use
  Company Number: US-ABBOTT-13P-163-1056157-00

PATIENT
  Age: 38 Year
  Sex: Female
  Weight: 54.48 kg

DRUGS (1)
  1. SYNTHROID [Suspect]
     Indication: HYPOTHYROIDISM
     Route: 048
     Dates: start: 20130211, end: 20130219

REACTIONS (4)
  - Dry skin [Not Recovered/Not Resolved]
  - Face oedema [Not Recovered/Not Resolved]
  - Breast swelling [Recovering/Resolving]
  - Breast pain [Recovering/Resolving]
